FAERS Safety Report 6226606-5 (Version None)
Quarter: 2009Q2

REPORT INFORMATION
  Report Type: 
  Country: None (occurrence: None)
  Receive Date: 20090612
  Receipt Date: 20090608
  Transmission Date: 20091009
  Serious: Yes (Other)
  Sender: FDA-Public Use
  Company Number: US-JNJFOC-20050906943

PATIENT
  Sex: Male
  Weight: 18.6 kg

DRUGS (2)
  1. RISPERDAL [Suspect]
     Indication: AUTISM
     Route: 048
     Dates: start: 20040927, end: 20050401
  2. LAMICTAL [Concomitant]
     Indication: CONVULSION

REACTIONS (2)
  - BLOOD PROLACTIN INCREASED [None]
  - GALACTOCELE [None]
